FAERS Safety Report 10028660 (Version 1)
Quarter: 2014Q1

REPORT INFORMATION
  Report Type: Spontaneous
  Country: GB (occurrence: GB)
  Receive Date: 20140321
  Receipt Date: 20140321
  Transmission Date: 20141002
  Serious: Yes (Other)
  Sender: FDA-Public Use
  Company Number: GB-GLAXOSMITHKLINE-B0976664A

PATIENT
  Age: 44 Year
  Sex: Female
  Weight: 64 kg

DRUGS (3)
  1. FLUTICASONE [Suspect]
     Dates: start: 20131115
  2. FLUTIFORM [Suspect]
     Dates: start: 20140226, end: 20140303
  3. VENTOLIN [Concomitant]
     Dates: start: 20131115, end: 20140225

REACTIONS (3)
  - Hypersensitivity [Recovering/Resolving]
  - Lip swelling [Recovering/Resolving]
  - Oedema mouth [Recovering/Resolving]
